FAERS Safety Report 5148929-3 (Version None)
Quarter: 2006Q4

REPORT INFORMATION
  Report Type: 
  Country: None (occurrence: None)
  Receive Date: 20061113
  Receipt Date: 20061023
  Transmission Date: 20070319
  Serious: Yes (Hospitalization)
  Sender: FDA-Public Use
  Company Number: PHEH2006US13356

PATIENT
  Age: 53 Year
  Sex: Female

DRUGS (5)
  1. ZELNORM [Suspect]
     Indication: CONSTIPATION
     Dosage: 6 MG, BID
     Route: 048
     Dates: start: 20060901, end: 20061017
  2. CELEBREX [Concomitant]
  3. HORMONES [Concomitant]
  4. OXYCONTIN [Concomitant]
  5. IMITREX [Concomitant]

REACTIONS (7)
  - CIRCULATORY COLLAPSE [None]
  - COLITIS [None]
  - DIARRHOEA [None]
  - PAIN [None]
  - RECTAL HAEMORRHAGE [None]
  - RESUSCITATION [None]
  - SHOCK [None]
